FAERS Safety Report 6008131-X (Version None)
Quarter: 2008Q4

REPORT INFORMATION
  Report Type: 
  Country: None (occurrence: None)
  Receive Date: 20081217
  Receipt Date: 20080827
  Transmission Date: 20090506
  Serious: No
  Sender: FDA-Public Use
  Company Number: US-ASTRAZENECA-2008UW17899

PATIENT
  Sex: Female

DRUGS (2)
  1. CRESTOR [Suspect]
     Route: 048
  2. SYNTHROID [Interacting]

REACTIONS (2)
  - DRUG INTERACTION [None]
  - LIVER FUNCTION TEST ABNORMAL [None]
